FAERS Safety Report 7392696-X (Version None)
Quarter: 2011Q2

REPORT INFORMATION
  Report Type: 
  Country: None (occurrence: None)
  Receive Date: 20110404
  Receipt Date: 20110328
  Transmission Date: 20111010
  Serious: Yes (Hospitalization, Disabling)
  Sender: FDA-Public Use
  Company Number: GB-PFIZER INC-2011059713

PATIENT
  Age: 73 Year
  Sex: Male

DRUGS (8)
  1. SIROLIMUS [Suspect]
     Indication: ECZEMA
     Dosage: 2 MG, UNK
     Route: 048
     Dates: start: 20100301, end: 20110301
  2. PREDNISOLONE [Concomitant]
     Indication: ECZEMA
     Dosage: 30 MG, UNK
     Route: 048
  3. PREDNISOLONE [Concomitant]
     Indication: DERMATITIS
  4. LANSOPRAZOLE [Concomitant]
     Indication: PROPHYLAXIS
     Dosage: 30 MG, UNK
     Route: 048
  5. ALENDRONIC ACID [Concomitant]
     Indication: PROPHYLAXIS
     Dosage: 70 MG, UNK
     Route: 048
  6. SIROLIMUS [Suspect]
     Indication: DERMATITIS EXFOLIATIVE
  7. SIROLIMUS [Suspect]
  8. ADCAL-D3 [Concomitant]
     Indication: PROPHYLAXIS
     Dosage: 1 DF, 2X/DAY
     Route: 048

REACTIONS (3)
  - ATRIAL FIBRILLATION [None]
  - LEFT VENTRICULAR DYSFUNCTION [None]
  - DYSPNOEA [None]
